FAERS Safety Report 16130510 (Version 1)
Quarter: 2019Q1

REPORT INFORMATION
  Report Type: Spontaneous
  Country: US (occurrence: US)
  Receive Date: 20190328
  Receipt Date: 20190328
  Transmission Date: 20190418
  Serious: Yes (Hospitalization, Other)
  Sender: FDA-Public Use
  Company Number: US-009507513-1903USA011394

PATIENT
  Sex: Female

DRUGS (1)
  1. NUVARING [Suspect]
     Active Substance: ETHINYL ESTRADIOL\ETONOGESTREL
     Indication: PRODUCT USED FOR UNKNOWN INDICATION
     Dosage: UNK
     Route: 067
     Dates: end: 201803

REACTIONS (5)
  - Pulmonary embolism [Unknown]
  - Lung infiltration [Unknown]
  - Left ventricular dilatation [Unknown]
  - Migraine [Unknown]
  - Pneumonia [Unknown]

NARRATIVE: CASE EVENT DATE: 201803
